FAERS Safety Report 23431259 (Version 2)
Quarter: 2024Q1

REPORT INFORMATION
  Report Type: Report from Study
  Country: CA (occurrence: CA)
  Receive Date: 20240123
  Receipt Date: 20240129
  Transmission Date: 20240409
  Serious: Yes (Other)
  Sender: FDA-Public Use
  Company Number: CA-JNJFOC-20240140485

PATIENT
  Age: 15 Year
  Sex: Female

DRUGS (1)
  1. REMICADE [Suspect]
     Active Substance: INFLIXIMAB
     Indication: Crohn^s disease
     Route: 041

REACTIONS (1)
  - Influenza [Recovered/Resolved]

NARRATIVE: CASE EVENT DATE: 20240101
